FAERS Safety Report 10048231 (Version 5)
Quarter: 2014Q2

REPORT INFORMATION
  Report Type: Report from Study
  Country: US (occurrence: US)
  Receive Date: 20140331
  Receipt Date: 20140519
  Transmission Date: 20141212
  Serious: Yes (Death, Life-Threatening, Hospitalization, Disabling, Other)
  Sender: FDA-Public Use
  Company Number: US-ACTELION-A-US2013-83353

PATIENT
  Age: 56 Year
  Sex: Female

DRUGS (6)
  1. VELETRI [Suspect]
     Indication: PULMONARY HYPERTENSION
     Dosage: 62 NG/KG, PER MIN
     Route: 042
     Dates: start: 20110902
  2. VELETRI [Suspect]
     Dosage: 65 NG/KG, PER MIN
     Route: 042
  3. VELETRI [Suspect]
     Dosage: 59 NG/KG, PER MIN
     Route: 042
     Dates: start: 201201
  4. TRACLEER [Suspect]
     Indication: PULMONARY HYPERTENSION
     Dosage: 125 MG, BID
     Route: 048
     Dates: start: 201308, end: 201404
  5. REVATIO [Concomitant]
  6. COUMADIN [Concomitant]

REACTIONS (11)
  - Death [Fatal]
  - Life support [Unknown]
  - Cystostomy [Unknown]
  - Cardiac failure congestive [Unknown]
  - Paracentesis [Unknown]
  - Fluid retention [Not Recovered/Not Resolved]
  - Pulmonary arterial hypertension [Not Recovered/Not Resolved]
  - Ascites [Unknown]
  - Right ventricular failure [Not Recovered/Not Resolved]
  - Fluid overload [Not Recovered/Not Resolved]
  - Oedema [Unknown]
